FAERS Safety Report 21828390 (Version 1)
Quarter: 2023Q1

REPORT INFORMATION
  Report Type: Report from Study
  Country: BR (occurrence: BR)
  Receive Date: 20230106
  Receipt Date: 20230106
  Transmission Date: 20230418
  Serious: Yes (Hospitalization)
  Sender: FDA-Public Use
  Company Number: BR-ABBVIE-4259577

PATIENT
  Sex: Male
  Weight: 56 kg

DRUGS (1)
  1. RINVOQ [Suspect]
     Active Substance: UPADACITINIB
     Indication: Dermatitis atopic
     Dosage: LAST ADMIN: 2022;?THE EVENT SKIN INFECTION ALL OVER BODY ONSET DATE WAS 2022
     Route: 048
     Dates: start: 20220901

REACTIONS (1)
  - Skin infection [Unknown]
